FAERS Safety Report 10076051 (Version 1)
Quarter: 2014Q2

REPORT INFORMATION
  Report Type: Spontaneous
  Country: US (occurrence: US)
  Receive Date: 20140414
  Receipt Date: 20140414
  Transmission Date: 20141212
  Serious: Yes (Disabling)
  Sender: FDA-Public Use
  Company Number: US-009507513-1404USA006777

PATIENT
  Sex: Female

DRUGS (5)
  1. REMERON [Suspect]
     Indication: PRODUCT USED FOR UNKNOWN INDICATION
     Route: 048
  2. ZYPREXA [Suspect]
     Indication: PRODUCT USED FOR UNKNOWN INDICATION
  3. ABILIFY [Suspect]
     Indication: PRODUCT USED FOR UNKNOWN INDICATION
  4. LUNESTA [Suspect]
     Indication: PRODUCT USED FOR UNKNOWN INDICATION
  5. CLOZARIL [Suspect]
     Indication: PRODUCT USED FOR UNKNOWN INDICATION

REACTIONS (13)
  - Bedridden [Unknown]
  - Eye pain [Unknown]
  - Abdominal pain upper [Unknown]
  - Hyperkeratosis [Unknown]
  - Cough [Unknown]
  - Pneumothorax [Unknown]
  - Urinary tract infection [Unknown]
  - Gastrointestinal pain [Unknown]
  - Toothache [Unknown]
  - Endodontic procedure [Unknown]
  - Tooth loss [Unknown]
  - Tooth extraction [Unknown]
  - Vessel puncture site pain [Unknown]
